FAERS Safety Report 6057023-9 (Version None)
Quarter: 2009Q1

REPORT INFORMATION
  Report Type: 
  Country: None (occurrence: None)
  Receive Date: 20090126
  Receipt Date: 20090107
  Transmission Date: 20090719
  Serious: Yes (Death)
  Sender: FDA-Public Use
  Company Number: B0553662A

PATIENT
  Age: 47 Year
  Sex: Female

DRUGS (5)
  1. BUPROPION HCL [Suspect]
     Dosage: ORAL
     Route: 048
  2. FLUOXETINE [Suspect]
  3. CYPROHEPTADINE HCL [Suspect]
  4. OXYCODONE AND ACETAMINOPHEN [Suspect]
  5. LORAZEPAM [Suspect]

REACTIONS (14)
  - AGGRESSION [None]
  - AGITATION [None]
  - COMPLETED SUICIDE [None]
  - CONVULSION [None]
  - HALLUCINATION [None]
  - HEPATIC NECROSIS [None]
  - HYPOTENSION [None]
  - LETHARGY [None]
  - LOBAR PNEUMONIA [None]
  - MULTIPLE DRUG OVERDOSE [None]
  - NO THERAPEUTIC RESPONSE [None]
  - RESPIRATORY ARREST [None]
  - RESTLESSNESS [None]
  - VOMITING [None]
